FAERS Safety Report 5100613-8 (Version None)
Quarter: 2006Q3

REPORT INFORMATION
  Report Type: 
  Country: None (occurrence: None)
  Receive Date: 20060907
  Receipt Date: 20060907
  Transmission Date: 20061208
  Serious: Yes (Hospitalization)
  Sender: FDA-Public Use
  Company Number: None

PATIENT
  Sex: Male
  Weight: 14.9 kg

DRUGS (5)
  1. METHOTREXATE [Suspect]
     Dosage: 10 MG
  2. PEG-L-ASPARAGINASE (K-H) [Suspect]
     Dosage: 1500 MG
  3. VINCRISTINE SULFATE [Suspect]
     Dosage: 3.6 MG  SEE IMAGE
  4. DAUNORUBICIN HCL [Suspect]
     Dosage: 51 MG  SEE IMAGE
  5. DEXAMETHASONE TAB [Suspect]
     Dosage: 84 MG  SEE IMAGE

REACTIONS (16)
  - BILIRUBIN CONJUGATED INCREASED [None]
  - BLOOD CULTURE POSITIVE [None]
  - CEREBRAL HAEMORRHAGE [None]
  - CEREBRAL ISCHAEMIA [None]
  - COUGH [None]
  - DRUG TOXICITY [None]
  - ENCEPHALOPATHY [None]
  - HEPATOSPLENOMEGALY [None]
  - HYPERCALCAEMIA [None]
  - HYPOKALAEMIA [None]
  - LEUKOENCEPHALOMYELITIS [None]
  - PNEUMOTHORAX [None]
  - PYREXIA [None]
  - RESPIRATORY DISTRESS [None]
  - VOMITING [None]
  - WHITE BLOOD CELL COUNT INCREASED [None]
